FAERS Safety Report 22102575 (Version 1)
Quarter: 2023Q1

REPORT INFORMATION
  Report Type: Spontaneous
  Country: BR (occurrence: BR)
  Receive Date: 20230316
  Receipt Date: 20230316
  Transmission Date: 20230418
  Serious: Yes (Other)
  Sender: FDA-Public Use
  Company Number: BR-PFIZER INC-PV202300047993

PATIENT
  Age: 21 Year
  Sex: Female

DRUGS (6)
  1. SPIRONOLACTONE [Suspect]
     Active Substance: SPIRONOLACTONE
     Indication: Non-compaction cardiomyopathy
     Dosage: UNK
  2. BISOPROLOL [Concomitant]
     Active Substance: BISOPROLOL
     Dosage: 10 MG, 1X/DAY
  3. SACUBITRIL\VALSARTAN [Concomitant]
     Active Substance: SACUBITRIL\VALSARTAN
     Dosage: UNK, 2X/DAY
  4. WARFARIN [Concomitant]
     Active Substance: WARFARIN
     Dosage: 7 MG
  5. WARFARIN [Concomitant]
     Active Substance: WARFARIN
     Dosage: 5 MG, WEEKLY (5 TIMES/WEEK)
  6. WARFARIN [Concomitant]
     Active Substance: WARFARIN
     Dosage: 5 MG, WEEKLY (TWICE/WEEK)

REACTIONS (1)
  - Hypotension [Unknown]
